FAERS Safety Report 7470587-3 (Version None)
Quarter: 2011Q2

REPORT INFORMATION
  Report Type: 
  Country: None (occurrence: None)
  Receive Date: 20110429
  Receipt Date: 20110415
  Transmission Date: 20111010
  Serious: Yes (Hospitalization)
  Sender: FDA-Public Use
  Company Number: 031372

PATIENT
  Sex: Male
  Weight: 59 kg

DRUGS (14)
  1. METFORMIN HCL [Concomitant]
  2. SINGULAIR [Concomitant]
  3. OXYGESIC [Concomitant]
  4. ALENDRONIC ACID [Concomitant]
  5. INSULIN [Concomitant]
  6. ENALAPRIL MALEATE [Concomitant]
  7. PREDNISOLONE [Concomitant]
  8. FERROUS SULFATE TAB [Concomitant]
  9. NOVALGIN [Concomitant]
  10. GLIMEPIRIDE [Concomitant]
  11. CIMZIA [Suspect]
     Indication: RHEUMATOID ARTHRITIS
     Dosage: 200 MG 1X2 WEEKS, SUBCUTANEOUS
     Route: 058
     Dates: start: 20100323
  12. FOLIC ACID [Concomitant]
  13. CALCIVIT D [Concomitant]
  14. ANTRAMUPS [Concomitant]

REACTIONS (1)
  - PNEUMONIA [None]
